FAERS Safety Report 15804390 (Version 1)
Quarter: 2019Q1

REPORT INFORMATION
  Report Type: Spontaneous
  Country: US (occurrence: US)
  Receive Date: 20190109
  Receipt Date: 20190109
  Transmission Date: 20190417
  Serious: No
  Sender: FDA-Public Use
  Company Number: US-MYLANLABS-2018M1097321

PATIENT
  Age: 47 Year
  Sex: Female
  Weight: 47.17 kg

DRUGS (2)
  1. DIAZEPAM TABLETS USP [Suspect]
     Active Substance: DIAZEPAM
     Indication: DEPRESSION
     Dosage: 10 MILLIGRAM (AS NEEDED)
     Route: 048
     Dates: start: 20181129, end: 201812
  2. DULOXETINE. [Concomitant]
     Active Substance: DULOXETINE
     Dosage: 40 MILLIGRAM, BID
     Route: 048
     Dates: start: 201812

REACTIONS (1)
  - Drug ineffective [Unknown]

NARRATIVE: CASE EVENT DATE: 20181129
